FAERS Safety Report 4687245-0 (Version None)
Quarter: 2005Q2

REPORT INFORMATION
  Report Type: 
  Country: None (occurrence: None)
  Receive Date: 20050606
  Receipt Date: 20050524
  Transmission Date: 20051028
  Serious: Yes (Life-Threatening, Hospitalization)
  Sender: FDA-Public Use
  Company Number: 2005065228

PATIENT
  Age: 61 Year
  Sex: Male

DRUGS (9)
  1. VIAGRA [Suspect]
     Indication: ILL-DEFINED DISORDER
     Dosage: ORAL
     Route: 048
     Dates: end: 20050401
  2. FLUTIDE (FLUTICASONE PROPIONATE) [Concomitant]
  3. SEREVENT [Concomitant]
  4. TAMBOCOR [Concomitant]
  5. SULTANOL(SALBUTAMOL) [Concomitant]
  6. UNIPHYL [Concomitant]
  7. EBASTEL (EBASTINE) [Concomitant]
  8. MUCODYNE (CARBOCISTEINE) [Concomitant]
  9. SPIRIVA ^BOEHRINGER INFELHEIM^ (TIOTROPIUM BROMIDE) [Concomitant]

REACTIONS (5)
  - ASTHMA [None]
  - BLOOD CHLORIDE INCREASED [None]
  - BLOOD CREATINE PHOSPHOKINASE INCREASED [None]
  - BLOOD LACTATE DEHYDROGENASE INCREASED [None]
  - CARDIAC FAILURE [None]
